FAERS Safety Report 9262744 (Version 1)
Quarter: 2013Q2

REPORT INFORMATION
  Report Type: Spontaneous
  Country: US (occurrence: None)
  Receive Date: 20130426
  Receipt Date: 20130426
  Transmission Date: 20140414
  Serious: Yes (Disabling, Other)
  Sender: FDA-Public Use
  Company Number: GER/UKI/13/0029226

PATIENT
  Age: 92 Year
  Sex: Female

DRUGS (7)
  1. CIPROFLOXACIN (CIPROFLOXACIN) [Suspect]
     Indication: BRONCHITIS
     Route: 048
     Dates: start: 20130208
  2. AMITRIPTYLINE (AMITRIPTYLINE) [Concomitant]
  3. RISEDRONATE (RISEDRONATE SODIUM) [Concomitant]
  4. TRAMADOL (TRAMADOL) [Concomitant]
  5. RAMPRIL (RAMIPRIL) [Concomitant]
  6. DIGOXIN (DIGOXIN) [Concomitant]
  7. PREDNISOLONE (PREDNISOLONE) [Concomitant]

REACTIONS (4)
  - Tendon pain [None]
  - Pain in extremity [None]
  - Tendonitis [None]
  - Abasia [None]
